FAERS Safety Report 18885282 (Version 1)
Quarter: 2021Q1

REPORT INFORMATION
  Report Type: Spontaneous
  Country: US (occurrence: US)
  Receive Date: 20210211
  Receipt Date: 20210211
  Transmission Date: 20210420
  Serious: Yes (Death)
  Sender: FDA-Public Use
  Company Number: None

PATIENT
  Age: 81 Year
  Sex: Male
  Weight: 68.04 kg

DRUGS (1)
  1. REMDESIVIR 100MG [Suspect]
     Active Substance: REMDESIVIR
     Indication: COVID-19
     Dosage: DOSE: 200MGX1, 100MG?          OTHER ROUTE:IVPB?
     Dates: start: 20210108, end: 20210112

REACTIONS (1)
  - Death [None]

NARRATIVE: CASE EVENT DATE: 20210121
